FAERS Safety Report 24981984 (Version 1)
Quarter: 2025Q1

REPORT INFORMATION
  Report Type: Spontaneous
  Country: GB (occurrence: GB)
  Receive Date: 20250218
  Receipt Date: 20250218
  Transmission Date: 20250409
  Serious: Yes (Other)
  Sender: GLAXOSMITHKLINE
  Company Number: None

PATIENT

DRUGS (1)
  1. ABACAVIR SULFATE\LAMIVUDINE [Interacting]
     Active Substance: ABACAVIR SULFATE\LAMIVUDINE
     Indication: Product used for unknown indication
     Dosage: 1 DF, QD (1 TABLET OD)

REACTIONS (3)
  - Renal impairment [Unknown]
  - Disease risk factor [Unknown]
  - Drug interaction [Unknown]
